FAERS Safety Report 8974118 (Version 1)
Quarter: 2012Q4

REPORT INFORMATION
  Report Type: Spontaneous
  Country: JP (occurrence: None)
  Receive Date: 20121130
  Receipt Date: 20121130
  Transmission Date: 20130627
  Serious: Yes (Hospitalization, Other)
  Sender: FDA-Public Use
  Company Number: ADR-2012-02209

PATIENT
  Age: 20 Year
  Sex: Male
  Weight: 58 kg

DRUGS (1)
  1. GABALON [Suspect]
     Indication: SPASMS
     Dosage: SEE B5

REACTIONS (3)
  - Urinary tract infection [None]
  - Calculus urinary [None]
  - Dyspepsia [None]
